FAERS Safety Report 5275217-7 (Version None)
Quarter: 2007Q1

REPORT INFORMATION
  Report Type: 
  Country: None (occurrence: None)
  Receive Date: 20070320
  Receipt Date: 20070309
  Transmission Date: 20070707
  Serious: Yes (Hospitalization)
  Sender: FDA-Public Use
  Company Number: 2007-154302-NL

PATIENT
  Age: 56 Year
  Sex: Male

DRUGS (2)
  1. MIRTAZAPINE [Suspect]
     Dosage: 30 MG ORAL
     Route: 048
     Dates: start: 20040401, end: 20060901
  2. ACETYLSALICYLIC ACID SRT [Concomitant]

REACTIONS (1)
  - ATRIAL FIBRILLATION [None]
